FAERS Safety Report 20769983 (Version 1)
Quarter: 2022Q2

REPORT INFORMATION
  Report Type: Spontaneous
  Country: US (occurrence: US)
  Receive Date: 20220429
  Receipt Date: 20220429
  Transmission Date: 20220721
  Serious: No
  Sender: FDA-Public Use
  Company Number: US-PFIZER INC-202101882041

PATIENT
  Age: 63 Year
  Sex: Female

DRUGS (1)
  1. LEVOTHYROXINE SODIUM [Suspect]
     Active Substance: LEVOTHYROXINE SODIUM
     Dosage: UNK

REACTIONS (6)
  - Headache [Unknown]
  - Sinusitis [Unknown]
  - Secretion discharge [Unknown]
  - Productive cough [Unknown]
  - Wrong strength [Unknown]
  - Exposure to SARS-CoV-2 [Unknown]
